FAERS Safety Report 9422261 (Version 5)
Quarter: 2015Q2

REPORT INFORMATION
  Report Type: Spontaneous
  Country: FR (occurrence: FR)
  Receive Date: 20130726
  Receipt Date: 20150528
  Transmission Date: 20150821
  Serious: Yes (Life-Threatening, Hospitalization, Disabling, Other)
  Sender: FDA-Public Use
  Company Number: FR-ASTRAZENECA-2013SE55930

PATIENT
  Age: 14399 Day
  Sex: Male
  Weight: 68 kg

DRUGS (23)
  1. XEROQUEL [Interacting]
     Active Substance: QUETIAPINE FUMARATE
     Indication: SUICIDAL IDEATION
     Route: 048
     Dates: end: 20130823
  2. DEPAMIDE [Concomitant]
     Active Substance: VALPROMIDE
     Indication: BIPOLAR DISORDER
     Route: 048
     Dates: start: 20121217, end: 20121220
  3. XEROQUEL [Interacting]
     Active Substance: QUETIAPINE FUMARATE
     Indication: MAJOR DEPRESSION
     Route: 048
     Dates: start: 20121214, end: 20121214
  4. LEPTICUR [Interacting]
     Active Substance: TROPATEPINE HYDROCHLORIDE
     Indication: PROPHYLAXIS
     Route: 048
     Dates: start: 20121212, end: 20121221
  5. LYSANXIA [Concomitant]
     Active Substance: PRAZEPAM
     Indication: ANXIETY
     Route: 048
     Dates: start: 20121219, end: 20121220
  6. XEROQUEL [Interacting]
     Active Substance: QUETIAPINE FUMARATE
     Indication: SUICIDAL IDEATION
     Route: 048
     Dates: start: 20121213, end: 20121213
  7. XEROQUEL [Interacting]
     Active Substance: QUETIAPINE FUMARATE
     Indication: PSYCHOTIC DISORDER
     Route: 048
     Dates: start: 20121215, end: 20121221
  8. XEROQUEL [Interacting]
     Active Substance: QUETIAPINE FUMARATE
     Indication: SUICIDAL IDEATION
     Route: 048
     Dates: start: 20121215, end: 20121221
  9. XEROQUEL [Interacting]
     Active Substance: QUETIAPINE FUMARATE
     Indication: BIPOLAR DISORDER
     Route: 048
     Dates: start: 20121214, end: 20121214
  10. XEROQUEL [Interacting]
     Active Substance: QUETIAPINE FUMARATE
     Indication: BIPOLAR DISORDER
     Route: 048
     Dates: start: 20121215, end: 20121221
  11. XEROQUEL [Interacting]
     Active Substance: QUETIAPINE FUMARATE
     Indication: MAJOR DEPRESSION
     Route: 048
     Dates: start: 20121215, end: 20121221
  12. XEROQUEL [Interacting]
     Active Substance: QUETIAPINE FUMARATE
     Indication: PSYCHOTIC DISORDER
     Route: 048
     Dates: end: 20130823
  13. TERCIAN [Concomitant]
     Active Substance: CYAMEMAZINE
     Indication: BIPOLAR DISORDER
     Dates: end: 20121213
  14. XEROQUEL [Interacting]
     Active Substance: QUETIAPINE FUMARATE
     Indication: MAJOR DEPRESSION
     Route: 048
     Dates: start: 20121213, end: 20121213
  15. XEROQUEL [Interacting]
     Active Substance: QUETIAPINE FUMARATE
     Indication: PSYCHOTIC DISORDER
     Route: 048
     Dates: start: 20121214, end: 20121214
  16. XEROQUEL [Interacting]
     Active Substance: QUETIAPINE FUMARATE
     Indication: SUICIDAL IDEATION
     Route: 048
     Dates: start: 20121214, end: 20121214
  17. XEROQUEL [Interacting]
     Active Substance: QUETIAPINE FUMARATE
     Indication: BIPOLAR DISORDER
     Route: 048
     Dates: end: 20130823
  18. LACTULOSE. [Concomitant]
     Active Substance: LACTULOSE
  19. XEROQUEL [Interacting]
     Active Substance: QUETIAPINE FUMARATE
     Indication: PSYCHOTIC DISORDER
     Route: 048
     Dates: start: 20121213, end: 20121213
  20. XEROQUEL [Interacting]
     Active Substance: QUETIAPINE FUMARATE
     Indication: MAJOR DEPRESSION
     Route: 048
     Dates: end: 20130823
  21. LEPTICUR [Interacting]
     Active Substance: TROPATEPINE HYDROCHLORIDE
     Indication: EXTRAPYRAMIDAL DISORDER
     Route: 048
     Dates: start: 20121212, end: 20121221
  22. XEROQUEL [Suspect]
     Active Substance: QUETIAPINE FUMARATE
     Indication: BIPOLAR DISORDER
     Route: 048
     Dates: start: 20121213, end: 20121213
  23. HALDOL [Concomitant]
     Active Substance: HALOPERIDOL
     Route: 065
     Dates: start: 20121212, end: 20121214

REACTIONS (7)
  - Drug interaction [Unknown]
  - Megacolon [Recovered/Resolved]
  - Coma [Recovered/Resolved]
  - Intestinal obstruction [Recovered/Resolved]
  - Septic shock [Recovered/Resolved]
  - Colitis ischaemic [Recovered/Resolved with Sequelae]
  - Metabolic acidosis [Unknown]

NARRATIVE: CASE EVENT DATE: 20121221
